FAERS Safety Report 8416422 (Version 2)
Quarter: 2013Q2

REPORT INFORMATION
  Report Type: Report from Study
  Country: US (occurrence: US)
  Receive Date: 20120220
  Receipt Date: 20130401
  Transmission Date: 20140414
  Serious: Yes (Other)
  Sender: FDA-Public Use
  Company Number: US-BIOGENIDEC-2011BI014960

PATIENT
  Age: 31 Year
  Sex: Female

DRUGS (10)
  1. TYSABRI [Suspect]
     Indication: MULTIPLE SCLEROSIS
     Route: 042
     Dates: start: 20090723, end: 20110404
  2. TYSABRI [Suspect]
     Indication: MULTIPLE SCLEROSIS
     Route: 042
     Dates: start: 20111208
  3. ADDERALL [Concomitant]
     Dates: end: 201104
  4. LOVENOX [Concomitant]
     Dates: start: 201105
  5. FERRALET [Concomitant]
     Dates: start: 201105
  6. TYLENOL [Concomitant]
     Route: 048
  7. DIFLUCAN [Concomitant]
  8. PROCTOFOAM [Concomitant]
  9. SOLUMEDROL [Concomitant]
  10. BIFERA [Concomitant]

REACTIONS (2)
  - Pre-eclampsia [Recovered/Resolved]
  - Pregnancy [Recovered/Resolved]
